FAERS Safety Report 9246707 (Version 1)
Quarter: 2013Q2

REPORT INFORMATION
  Report Type: Spontaneous
  Country: US (occurrence: US)
  Receive Date: 20130422
  Receipt Date: 20130422
  Transmission Date: 20140414
  Serious: No
  Sender: FDA-Public Use
  Company Number: US-ABBOTT-12P-163-1011934-00

PATIENT
  Age: 19 Year
  Sex: Male

DRUGS (1)
  1. LUPRON (PEDIATRIC) [Suspect]
     Indication: ANGER
     Route: 030

REACTIONS (1)
  - Off label use [Not Recovered/Not Resolved]
